FAERS Safety Report 12088990 (Version 4)
Quarter: 2016Q1

REPORT INFORMATION
  Report Type: Spontaneous
  Country: AT (occurrence: AT)
  Receive Date: 20160218
  Receipt Date: 20160323
  Transmission Date: 20160526
  Serious: Yes (Other)
  Sender: FDA-Public Use
  Company Number: PHHY2016AT020121

PATIENT
  Weight: 51 kg

DRUGS (2)
  1. EXEMESTANE. [Suspect]
     Active Substance: EXEMESTANE
     Indication: BREAST CANCER METASTATIC
     Dosage: UNK
     Route: 065
     Dates: start: 20151210, end: 20160204
  2. AFINITOR [Suspect]
     Active Substance: EVEROLIMUS
     Indication: BREAST CANCER
     Dosage: 5 MG, UNK
     Route: 065
     Dates: start: 20151210, end: 20160121

REACTIONS (23)
  - Metastases to chest wall [Unknown]
  - Vocal cord paralysis [Not Recovered/Not Resolved]
  - Metastases to pleura [Unknown]
  - Malignant neoplasm progression [Not Recovered/Not Resolved]
  - Hepatic enzyme increased [Not Recovered/Not Resolved]
  - Blood potassium decreased [Unknown]
  - Metastases to bone [Unknown]
  - Metastases to liver [Unknown]
  - Dyspnoea exertional [Not Recovered/Not Resolved]
  - Metastases to lymph nodes [Unknown]
  - Haemoglobin decreased [Unknown]
  - Haematocrit decreased [Unknown]
  - Metastases to the mediastinum [Unknown]
  - Ascites [Unknown]
  - Pyrexia [Recovered/Resolved]
  - Gamma-glutamyltransferase increased [Unknown]
  - Fatigue [Not Recovered/Not Resolved]
  - Pleural effusion [Unknown]
  - Urinary tract infection [Recovered/Resolved]
  - Metastases to peritoneum [Unknown]
  - Parosmia [Recovered/Resolved]
  - Blood glucose increased [Unknown]
  - Dyspnoea [Not Recovered/Not Resolved]

NARRATIVE: CASE EVENT DATE: 2015
